FAERS Safety Report 7024499-X (Version None)
Quarter: 2010Q4

REPORT INFORMATION
  Report Type: 
  Country: None (occurrence: None)
  Receive Date: 20101001
  Receipt Date: 20100927
  Transmission Date: 20110411
  Serious: Yes (Death, Hospitalization)
  Sender: FDA-Public Use
  Company Number: A0882761A

PATIENT
  Age: 60 Year
  Sex: Male

DRUGS (1)
  1. ELTROMBOPAG [Suspect]
     Dosage: 100MG PER DAY
     Route: 048
     Dates: start: 20100816

REACTIONS (4)
  - FEBRILE NEUTROPENIA [None]
  - HYPOTENSION [None]
  - MENTAL STATUS CHANGES [None]
  - SEPSIS [None]
